FAERS Safety Report 8150564-X (Version None)
Quarter: 2012Q1

REPORT INFORMATION
  Report Type: 
  Country: None (occurrence: None)
  Receive Date: 20120220
  Receipt Date: 20120214
  Transmission Date: 20120608
  Serious: Yes (Death, Other)
  Sender: FDA-Public Use
  Company Number: JP-ASTELLAS-2012JP001318

PATIENT
  Age: 11 Year
  Sex: Female

DRUGS (4)
  1. MELPHALAN HYDROCHLORIDE [Concomitant]
     Dosage: 210 MG/M2, UNKNOWN/D
     Route: 065
  2. METHOTREXATE [Concomitant]
     Indication: PROPHYLAXIS AGAINST GRAFT VERSUS HOST DISEASE
     Route: 065
  3. STEROID [Concomitant]
     Indication: PROPHYLAXIS AGAINST GRAFT VERSUS HOST DISEASE
     Route: 065
  4. PROGRAF [Suspect]
     Indication: PROPHYLAXIS AGAINST GRAFT VERSUS HOST DISEASE
     Route: 065

REACTIONS (3)
  - DRUG INEFFECTIVE [None]
  - ACUTE GRAFT VERSUS HOST DISEASE [None]
  - ENCEPHALITIS HERPES [None]
